FAERS Safety Report 8581159-1 (Version None)
Quarter: 2012Q3

REPORT INFORMATION
  Report Type: 
  Country: None (occurrence: None)
  Receive Date: 20120809
  Receipt Date: 20120726
  Transmission Date: 20120928
  Serious: Yes (Death)
  Sender: FDA-Public Use
  Company Number: US-MYLANLABS-2009S1003981

PATIENT
  Age: 56 Year
  Sex: Male
  Weight: 113.4 kg

DRUGS (10)
  1. SERTRALINE HYDROCHLORIDE [Concomitant]
     Indication: DEPRESSION
     Route: 048
  2. FINASTERIDE [Concomitant]
     Route: 048
  3. NEURONTIN [Concomitant]
     Indication: PAIN
     Dosage: FOR MOOD AND PAIN
     Route: 048
  4. FLOMAX [Concomitant]
  5. FENTANYL [Suspect]
     Indication: PAIN
     Dosage: CHANGE PATCHES Q72H
     Route: 062
     Dates: end: 20070225
  6. MIRTAZAPINE [Concomitant]
     Indication: INSOMNIA
     Dosage: FOR MOOD AND SLEEP
     Route: 048
  7. VARDENAFIL HYDROCHLORIDE (LEVITRA) [Concomitant]
     Route: 048
  8. QUETIAPINE [Concomitant]
     Dosage: PRN - 300MG Q HS, 50MG QD
     Route: 048
  9. FELODIPINE [Concomitant]
     Indication: BLOOD PRESSURE INCREASED
     Route: 048
  10. HYDROCODONE BITARTRATE [Concomitant]

REACTIONS (2)
  - OVERDOSE [None]
  - TOXICITY TO VARIOUS AGENTS [None]
